FAERS Safety Report 6681641-8 (Version None)
Quarter: 2010Q2

REPORT INFORMATION
  Report Type: 
  Country: None (occurrence: None)
  Receive Date: 20100414
  Receipt Date: 20100406
  Transmission Date: 20101027
  Serious: Yes (Hospitalization)
  Sender: FDA-Public Use
  Company Number: GXKR2010GB03929

PATIENT
  Age: 57 Year
  Sex: Female

DRUGS (5)
  1. FLUOROURACIL [Suspect]
     Indication: CERVIX CARCINOMA STAGE IV
     Dosage: 1 G/SQM
  2. CISPLATIN [Concomitant]
     Indication: CERVIX CARCINOMA STAGE IV
     Dosage: 40 MG/M2, UNK
  3. CISPLATIN [Concomitant]
     Dosage: 75 MG/M2, UNK
  4. RADIOTHERAPY [Concomitant]
  5. HEPARIN [Concomitant]
     Indication: MESENTERIC VEIN THROMBOSIS

REACTIONS (7)
  - CONFUSIONAL STATE [None]
  - DECREASED APPETITE [None]
  - ENCEPHALOPATHY [None]
  - LETHARGY [None]
  - NAUSEA [None]
  - STEREOTYPY [None]
  - URINARY INCONTINENCE [None]
